FAERS Safety Report 8218788-0 (Version None)
Quarter: 2012Q1

REPORT INFORMATION
  Report Type: 
  Country: None (occurrence: None)
  Receive Date: 20120319
  Receipt Date: 20120313
  Transmission Date: 20120608
  Serious: Yes (Hospitalization, Other)
  Sender: FDA-Public Use
  Company Number: PHEH2011US04060

PATIENT
  Sex: Male
  Weight: 56.9 kg

DRUGS (22)
  1. NEURONTIN [Concomitant]
     Indication: NEUROPATHY PERIPHERAL
     Dosage: 200 MG, PRN
     Dates: start: 20110608
  2. FLUCONAZOLE [Concomitant]
     Dosage: 200 MG, DAILY
     Dates: start: 20110809
  3. PREVACID [Concomitant]
     Dosage: 30 MG, DAILY
     Dates: start: 20110426
  4. CALCIUM CARBONATE [Concomitant]
     Dosage: 1000 MG, TID
     Dates: start: 20110314
  5. VITAMIN D [Concomitant]
     Dosage: 4000 U, QD
     Dates: start: 20110608
  6. MIRALAX [Concomitant]
     Dosage: 17 G, QD
     Dates: start: 20110622
  7. DAPSONE [Concomitant]
     Dosage: 200 MG, QW
     Dates: start: 20110815, end: 20110915
  8. EXJADE [Suspect]
     Indication: ACUTE LYMPHOCYTIC LEUKAEMIA
     Dosage: 1000 MG, DAILY
     Route: 048
     Dates: start: 20110624, end: 20120120
  9. EMLA [Concomitant]
  10. PERIDEX [Concomitant]
     Dosage: 15 ML, QID
     Dates: start: 20090714
  11. ADEKS [Concomitant]
     Dosage: 1 DF, QD
     Dates: start: 20110505
  12. EXJADE [Suspect]
     Indication: CHELATION THERAPY
     Dosage: 1000 MG, DAILY
     Route: 048
     Dates: start: 20110622, end: 20111104
  13. EPIPEN [Concomitant]
  14. LEUCOVORIN CALCIUM [Concomitant]
  15. CARAFATE [Concomitant]
     Indication: OROPHARYNGEAL PAIN
  16. CHEMOTHERAPEUTICS [Concomitant]
  17. COLACE [Concomitant]
     Dosage: 200 MG, DAILY
     Dates: start: 20110131
  18. BENADRYL [Concomitant]
  19. NYSTATIN [Concomitant]
     Dosage: 5 ML, QID
  20. NEUPOGEN [Concomitant]
  21. ZOFRAN [Concomitant]
     Indication: NAUSEA
     Dosage: 8 MG (EVERY 8 HOURS), PRN
     Dates: start: 20080728
  22. NOVOLIN R [Concomitant]

REACTIONS (8)
  - HAEMOGLOBIN DECREASED [None]
  - MALAISE [None]
  - PLATELET COUNT DECREASED [None]
  - VOMITING [None]
  - PYREXIA [None]
  - GASTROINTESTINAL HAEMORRHAGE [None]
  - RASH MACULO-PAPULAR [None]
  - WHITE BLOOD CELL COUNT DECREASED [None]
